FAERS Safety Report 7489914-6 (Version None)
Quarter: 2011Q2

REPORT INFORMATION
  Report Type: 
  Country: None (occurrence: None)
  Receive Date: 20110512
  Receipt Date: 20110429
  Transmission Date: 20111010
  Serious: Yes (Life-Threatening)
  Sender: FDA-Public Use
  Company Number: 2011CP000066

PATIENT
  Age: 21 Year
  Sex: Male

DRUGS (3)
  1. ACETAMINOPHEN [Suspect]
     Indication: PREMEDICATION
     Dosage: IV
     Route: 042
  2. FABRAZYME [Suspect]
     Indication: FABRY'S DISEASE
     Dosage: 70 MG;1/2 WK;IV
     Route: 042
     Dates: start: 20020101, end: 20080804
  3. CHLORPHENIRAMINE MALEATE [Concomitant]

REACTIONS (5)
  - INFUSION RELATED REACTION [None]
  - FEELING HOT [None]
  - ANAPHYLACTIC REACTION [None]
  - CHEST DISCOMFORT [None]
  - TACHYCARDIA [None]
